FAERS Safety Report 5485521-5 (Version None)
Quarter: 2007Q4

REPORT INFORMATION
  Report Type: 
  Country: None (occurrence: None)
  Receive Date: 20071010
  Receipt Date: 20071010
  Transmission Date: 20080405
  Serious: Yes (Hospitalization)
  Sender: FDA-Public Use
  Company Number: None

PATIENT
  Age: 67 Year
  Sex: Female
  Weight: 86 kg

DRUGS (2)
  1. ZYPREXA [Suspect]
     Indication: BIPOLAR I DISORDER
     Dosage: 10 MG ONCE IM ONE DOSE
     Route: 030
     Dates: start: 20071002, end: 20071002
  2. ZYPREXA [Suspect]
     Indication: PSYCHOTIC DISORDER
     Dosage: 10 MG ONCE IM ONE DOSE
     Route: 030
     Dates: start: 20071002, end: 20071002

REACTIONS (1)
  - GRAND MAL CONVULSION [None]
